FAERS Safety Report 10215989 (Version 1)
Quarter: 2014Q2

REPORT INFORMATION
  Report Type: Spontaneous
  Country: US (occurrence: None)
  Receive Date: 20140602
  Receipt Date: 20140602
  Transmission Date: 20141212
  Serious: Yes (Hospitalization)
  Sender: FDA-Public Use
  Company Number: 2014AP003181

PATIENT
  Age: 55 Year
  Sex: Male

DRUGS (2)
  1. ZIPRASIDONE HYDROCHLORIDE [Suspect]
     Indication: MAJOR DEPRESSION
  2. LAMOTRIGINE (LAMOTRIGINE) [Concomitant]

REACTIONS (3)
  - Condition aggravated [None]
  - Off label use [None]
  - Tardive dyskinesia [None]
